FAERS Safety Report 7288444-4 (Version None)
Quarter: 2011Q1

REPORT INFORMATION
  Report Type: 
  Country: None (occurrence: None)
  Receive Date: 20110211
  Receipt Date: 20110208
  Transmission Date: 20110831
  Serious: Yes (Other)
  Sender: FDA-Public Use
  Company Number: A0912919A

PATIENT
  Sex: Female

DRUGS (2)
  1. ANTIHISTAMINE [Suspect]
     Route: 065
  2. DYAZIDE [Suspect]
     Dosage: 37.5MG UNKNOWN
     Route: 065

REACTIONS (2)
  - HYPOKALAEMIA [None]
  - DEHYDRATION [None]
